FAERS Safety Report 9669262 (Version 3)
Quarter: 2013Q4

REPORT INFORMATION
  Report Type: Spontaneous
  Country: DE (occurrence: DE)
  Receive Date: 20131105
  Receipt Date: 20131219
  Transmission Date: 20140711
  Serious: Yes (Death, Hospitalization, Other)
  Sender: FDA-Public Use
  Company Number: DE-NOVOPROD-390749

PATIENT
  Age: 86 Year
  Sex: Male

DRUGS (7)
  1. NOVOMIX 30 FLEXPEN [Suspect]
     Indication: TYPE 2 DIABETES MELLITUS
     Dosage: 8-8-4 IU
     Route: 065
  2. NOVOMIX 30 FLEXPEN [Suspect]
     Dosage: UNK
     Route: 065
     Dates: start: 201307
  3. CANESTEN [Concomitant]
     Dosage: SEVERAL TIMES DAILY
  4. METOPROLOL [Concomitant]
     Dosage: 1-0-0
  5. TORASEMIDE [Concomitant]
     Dosage: 20 MG
  6. OMEPRAZOLE [Concomitant]
     Dosage: 1-0-1, 20 MG
  7. LAXOBERAL [Concomitant]

REACTIONS (5)
  - General physical health deterioration [Fatal]
  - Dysphagia [Unknown]
  - Gastritis haemorrhagic [Unknown]
  - Blood glucose fluctuation [Unknown]
  - Intertrigo [Unknown]
